FAERS Safety Report 18564512 (Version 1)
Quarter: 2020Q4

REPORT INFORMATION
  Report Type: Spontaneous
  Country: US (occurrence: US)
  Receive Date: 20201130
  Receipt Date: 20201130
  Transmission Date: 20210114
  Serious: Yes (Hospitalization)
  Sender: FDA-Public Use
  Company Number: None

PATIENT
  Age: 85 Year
  Sex: Male

DRUGS (5)
  1. ASTAGRAF XL [Suspect]
     Active Substance: TACROLIMUS
     Indication: RENAL TRANSPLANT
     Dosage: ?          OTHER FREQUENCY:1MG QAM/QPM;?
     Route: 048
     Dates: start: 20200214
  2. ALBUTEROL. [Concomitant]
     Active Substance: ALBUTEROL
  3. OPTICAMBER [Concomitant]
  4. ACYCLOVIR. [Concomitant]
     Active Substance: ACYCLOVIR
  5. POLY-IRON [Concomitant]
     Active Substance: IRON

REACTIONS (1)
  - Chronic obstructive pulmonary disease [None]

NARRATIVE: CASE EVENT DATE: 20201125
